FAERS Safety Report 4620195-4 (Version None)
Quarter: 2005Q1

REPORT INFORMATION
  Report Type: 
  Country: None (occurrence: None)
  Receive Date: 20050321
  Receipt Date: 20050321
  Transmission Date: 20050727
  Serious: Yes (Life-Threatening, Hospitalization)
  Sender: FDA-Public Use
  Company Number: None

PATIENT
  Sex: Male

DRUGS (2)
  1. DOCETAXEL [Suspect]
     Indication: NEOPLASM MALIGNANT
     Dosage: INTRAVENOU
     Route: 042
     Dates: start: 20041213, end: 20041213
  2. PACLITAXEL [Suspect]
     Indication: NEOPLASM MALIGNANT
     Dosage: INTRAVENOU
     Route: 042
     Dates: start: 20041216, end: 20041216

REACTIONS (10)
  - ANAPHYLACTIC REACTION [None]
  - ANXIETY [None]
  - BACK PAIN [None]
  - CHEST DISCOMFORT [None]
  - CHEST PAIN [None]
  - DYSPNOEA [None]
  - FLUSHING [None]
  - HEADACHE [None]
  - INFUSION RELATED REACTION [None]
  - NECK PAIN [None]
